FAERS Safety Report 5139652-X (Version None)
Quarter: 2006Q4

REPORT INFORMATION
  Report Type: 
  Country: None (occurrence: None)
  Receive Date: 20061024
  Receipt Date: 20060922
  Transmission Date: 20070319
  Serious: Yes (Other)
  Sender: FDA-Public Use
  Company Number: 2006SP003027

PATIENT
  Age: 47 Year
  Sex: Male
  Weight: 90 kg

DRUGS (3)
  1. PEG-INTRON [Suspect]
     Indication: HEPATITIS B
     Dosage: 135 MCG; QW; SC
     Route: 058
     Dates: start: 20060502, end: 20060627
  2. PEG-INTRON [Suspect]
     Indication: HEPATITIS D
     Dosage: 135 MCG; QW; SC
     Route: 058
     Dates: start: 20060502, end: 20060627
  3. SILIMARIN [Concomitant]

REACTIONS (2)
  - ALANINE AMINOTRANSFERASE INCREASED [None]
  - ASPARTATE AMINOTRANSFERASE DECREASED [None]
